FAERS Safety Report 8120944 (Version 2)
Quarter: 2012Q4

REPORT INFORMATION
  Report Type: 
  Country: FR (occurrence: FR)
  Receive Date: 20110906
  Receipt Date: 20120917
  Transmission Date: 20130627
  Serious: Yes (Hospitalization)
  Sender: FDA-Public Use
  Company Number: FR-ELI_LILLY_AND_COMPANY-FR201108007626

PATIENT
  Age: 62 Year
  Sex: Male
  Weight: 72 kg

DRUGS (9)
  1. FORSTEO [Suspect]
     Indication: OSTEOPOROSIS
     Dosage: 20 ug, qd
     Route: 058
     Dates: start: 20100916
  2. BRICANYL [Concomitant]
  3. ATROVENT [Concomitant]
  4. SYMBICORT [Concomitant]
  5. OXEOL [Concomitant]
     Dosage: 1 DF, qd
  6. SPIRIVA [Concomitant]
  7. KARDEGIC [Concomitant]
  8. NEURONTIN [Concomitant]
  9. OXYGEN [Concomitant]

REACTIONS (1)
  - Lung disorder [Not Recovered/Not Resolved]
